FAERS Safety Report 9831519 (Version 3)
Quarter: 2014Q1

REPORT INFORMATION
  Report Type: Report from Study
  Country: DE (occurrence: DE)
  Receive Date: 20140121
  Receipt Date: 20140203
  Transmission Date: 20141002
  Serious: Yes (Hospitalization)
  Sender: FDA-Public Use
  Company Number: DE-BEH-2011028263

PATIENT
  Age: 58 Year
  Sex: Male

DRUGS (35)
  1. ZEMAIRA [Suspect]
     Indication: ALPHA-1 ANTI-TRYPSIN DEFICIENCY
     Route: 042
     Dates: start: 20100420
  2. ZEMAIRA [Suspect]
     Route: 042
     Dates: start: 20110411, end: 20110411
  3. ZEMAIRA [Suspect]
     Route: 042
     Dates: start: 20110531
  4. VIANI DISCUS [Concomitant]
     Dosage: 2 PUFFS BID
     Route: 055
     Dates: start: 20110601, end: 20110625
  5. ONBREZ [Concomitant]
     Route: 055
  6. SPIRIVA [Concomitant]
     Route: 055
     Dates: start: 20110531, end: 20110625
  7. PANTOZOL [Concomitant]
     Dates: start: 20110601, end: 20110625
  8. BRONCHORETARD [Concomitant]
     Route: 048
     Dates: start: 20110531, end: 20110531
  9. BRONCHORETARD [Concomitant]
     Route: 048
     Dates: start: 20110601, end: 20110625
  10. ALNA 0.4 [Concomitant]
     Route: 048
  11. ZYLORIC [Concomitant]
     Route: 048
     Dates: start: 20110601, end: 20110625
  12. ENAHEXAL [Concomitant]
     Route: 048
  13. HCT [Concomitant]
  14. METFORMIN [Concomitant]
     Route: 048
  15. VOLTAREN RESINAT [Concomitant]
  16. METAMIZOL [Concomitant]
     Dosage: 20 DROPS AS NEEDED
     Route: 048
     Dates: start: 20110531, end: 20110605
  17. ACC BAGS [Concomitant]
  18. FRAGMIN [Concomitant]
     Route: 058
     Dates: start: 20110531, end: 20110625
  19. PIPERACILLIN [Concomitant]
     Route: 042
     Dates: start: 20110531, end: 20110531
  20. PIPERACILLIN [Concomitant]
     Route: 042
     Dates: start: 20110601, end: 20110610
  21. COMBACTAM [Concomitant]
     Route: 042
     Dates: start: 20110531, end: 20110531
  22. COMBACTAM [Concomitant]
     Route: 042
     Dates: start: 20110601, end: 20110610
  23. KLACID [Concomitant]
     Route: 048
     Dates: start: 20110601, end: 20110601
  24. KLACID [Concomitant]
     Route: 048
     Dates: start: 20110602, end: 20110603
  25. KLACID [Concomitant]
     Route: 048
     Dates: start: 20110604, end: 20110614
  26. REKAWAN [Concomitant]
     Route: 048
     Dates: start: 20110603, end: 20110603
  27. REKAWAN [Concomitant]
     Route: 048
     Dates: start: 20110604, end: 20110610
  28. BALDURAT [Concomitant]
     Route: 048
     Dates: start: 20110613, end: 20110625
  29. ZIENAM [Concomitant]
     Route: 048
     Dates: start: 20110611, end: 20110625
  30. VFEND [Concomitant]
     Route: 048
     Dates: start: 20110621, end: 20110621
  31. VFEND [Concomitant]
     Route: 048
     Dates: start: 20110622, end: 20110625
  32. INSULIN [Concomitant]
     Dosage: BY SCHEDULE
     Route: 058
     Dates: start: 20110601, end: 20110609
  33. ACTRAPID [Concomitant]
     Dosage: BY SCHEDULE
     Route: 058
     Dates: start: 20110615, end: 20110625
  34. PIPRIL [Concomitant]
     Route: 042
     Dates: start: 20110531, end: 20110531
  35. PIPRIL [Concomitant]
     Route: 042
     Dates: start: 20110601, end: 20110610

REACTIONS (3)
  - Pulmonary fibrosis [Recovered/Resolved with Sequelae]
  - Pneumonia [Recovered/Resolved]
  - Lung abscess [Recovered/Resolved]
